FAERS Safety Report 18927754 (Version 1)
Quarter: 2021Q1

REPORT INFORMATION
  Report Type: Spontaneous
  Country: US (occurrence: US)
  Receive Date: 20210223
  Receipt Date: 20210223
  Transmission Date: 20210420
  Serious: No
  Sender: FDA-Public Use
  Company Number: None

PATIENT
  Age: 72 Year
  Sex: Female
  Weight: 96.6 kg

DRUGS (10)
  1. B12 FAST DISSOLVE [Concomitant]
  2. ZYRTEC ALLERGY CHILDRENS [Concomitant]
  3. LEVOTHYROXINE SODIUM. [Concomitant]
     Active Substance: LEVOTHYROXINE SODIUM
  4. HYDROCORTISONE ACE?PRAMOXINE [Concomitant]
  5. METFORMIN HCL ER (MOD) [Concomitant]
  6. VOTRIENT [Suspect]
     Active Substance: PAZOPANIB HYDROCHLORIDE
     Route: 048
     Dates: start: 20210125, end: 20210222
  7. CETIRIZINE HCL CHILDRENS ALRGY [Concomitant]
  8. PROSCAR [Concomitant]
     Active Substance: FINASTERIDE
  9. SERTRALINE HCL [Concomitant]
     Active Substance: SERTRALINE HYDROCHLORIDE
  10. OXYCODONE HCL ER [Concomitant]
     Active Substance: OXYCODONE HYDROCHLORIDE

REACTIONS (3)
  - Pruritus [None]
  - Skin irritation [None]
  - Diarrhoea [None]

NARRATIVE: CASE EVENT DATE: 20210129
